FAERS Safety Report 15052252 (Version 1)
Quarter: 2018Q2

REPORT INFORMATION
  Report Type: Other
  Country: US (occurrence: US)
  Receive Date: 20180622
  Receipt Date: 20180622
  Transmission Date: 20180711
  Serious: No
  Sender: FDA-Public Use
  Company Number: US-DENDREON PHARMACEUTICALS LLC-2017DEN000597

PATIENT
  Age: 76 Year
  Sex: Male
  Weight: 106.69 kg

DRUGS (2)
  1. FIRMAGON [Concomitant]
     Active Substance: DEGARELIX ACETATE
     Indication: PROSTATE CANCER
  2. PROVENGE [Suspect]
     Active Substance: SIPULEUCEL-T
     Indication: PROSTATE CANCER
     Route: 042
     Dates: start: 20170519, end: 20170519

REACTIONS (2)
  - Ill-defined disorder [Unknown]
  - No adverse event [Unknown]

NARRATIVE: CASE EVENT DATE: 2017
